FAERS Safety Report 5788794-4 (Version None)
Quarter: 2008Q2

REPORT INFORMATION
  Report Type: 
  Country: None (occurrence: None)
  Receive Date: 20080618
  Receipt Date: 20080102
  Transmission Date: 20081010
  Serious: Yes (Other)
  Sender: FDA-Public Use
  Company Number: 200718890US

PATIENT
  Age: 49 Year
  Sex: Male
  Weight: 77.1 kg

DRUGS (4)
  1. LANTUS [Suspect]
     Indication: TYPE 2 DIABETES MELLITUS
     Dosage: 34 U QD INJ
     Dates: start: 19970101
  2. NOVOLOG [Concomitant]
  3. BLOOD PRESSURE PILLS [Concomitant]
  4. CHOLESTEROL PILLS [Concomitant]

REACTIONS (1)
  - HYPOGLYCAEMIA [None]
